FAERS Safety Report 8066106-3 (Version None)
Quarter: 2012Q1

REPORT INFORMATION
  Report Type: 
  Country: None (occurrence: None)
  Receive Date: 20120124
  Receipt Date: 20120111
  Transmission Date: 20120608
  Serious: Yes (Hospitalization)
  Sender: FDA-Public Use
  Company Number: KH-ROCHE-1030003

PATIENT
  Age: 19 Year
  Sex: Female

DRUGS (1)
  1. ROCEPHIN [Suspect]
     Indication: PRODUCT USED FOR UNKNOWN INDICATION

REACTIONS (15)
  - RHINORRHOEA [None]
  - WHEEZING [None]
  - RALES [None]
  - RHONCHI [None]
  - PNEUMONIA [None]
  - TACHYPNOEA [None]
  - CYANOSIS [None]
  - INFLUENZA LIKE ILLNESS [None]
  - COUGH [None]
  - SPUTUM INCREASED [None]
  - OROPHARYNGEAL PAIN [None]
  - RESPIRATORY DISORDER [None]
  - STRIDOR [None]
  - SEPTIC SHOCK [None]
  - ABDOMINAL PAIN [None]
